FAERS Safety Report 5134054-4 (Version None)
Quarter: 2006Q4

REPORT INFORMATION
  Report Type: 
  Country: None (occurrence: None)
  Receive Date: 20061019
  Receipt Date: 20061002
  Transmission Date: 20070319
  Serious: Yes (Death, Life-Threatening, Hospitalization)
  Sender: FDA-Public Use
  Company Number: REM_00270_2006

PATIENT
  Age: 55 Year
  Sex: Male

DRUGS (6)
  1. REMODULIN [Suspect]
     Indication: PULMONARY HYPERTENSION
     Dosage: 10 NG/KG/MIN IV
     Route: 042
     Dates: start: 20060927, end: 20061005
  2. BOSENTAN [Concomitant]
  3. FERROUS FUMARATE [Concomitant]
  4. SILDENAFIL [Concomitant]
  5. SPIRONOLACTONE [Concomitant]
  6. FUROSEMIDE [Concomitant]

REACTIONS (11)
  - BLOOD POTASSIUM INCREASED [None]
  - CARDIAC VENTRICULAR DISORDER [None]
  - DIALYSIS [None]
  - ENTEROBACTER SEPSIS [None]
  - GENERAL PHYSICAL HEALTH DETERIORATION [None]
  - HYPOTENSION [None]
  - OXYGEN SATURATION DECREASED [None]
  - PERICARDIAL EFFUSION [None]
  - RENAL IMPAIRMENT [None]
  - TACHYPNOEA [None]
  - URINARY RETENTION [None]
